FAERS Safety Report 5319512-1 (Version None)
Quarter: 2007Q2

REPORT INFORMATION
  Report Type: 
  Country: None (occurrence: None)
  Receive Date: 20070508
  Receipt Date: 20070426
  Transmission Date: 20071010
  Serious: Yes (Other)
  Sender: FDA-Public Use
  Company Number: FR-ELI_LILLY_AND_COMPANY-FR200702001813

PATIENT
  Age: 70 Year
  Sex: Female
  Weight: 39 kg

DRUGS (4)
  1. FORTEO [Suspect]
     Indication: OSTEOPOROSIS
     Dosage: 20 UG, DAILY (1/D)
     Route: 058
     Dates: start: 20070102
  2. DIGOXIN [Concomitant]
     Dates: start: 20010101
  3. ISOPTIN [Concomitant]
     Dates: start: 20010101
  4. PREVISCAN [Concomitant]
     Dates: start: 20010101

REACTIONS (6)
  - CHEST PAIN [None]
  - FATIGUE [None]
  - INSOMNIA [None]
  - PALPITATIONS [None]
  - POLLAKIURIA [None]
  - WEIGHT DECREASED [None]
